FAERS Safety Report 9009565 (Version 1)
Quarter: 2013Q1

REPORT INFORMATION
  Report Type: Report from Study
  Country: IT (occurrence: IT)
  Receive Date: 20130110
  Receipt Date: 20130110
  Transmission Date: 20140127
  Serious: Yes (Other)
  Sender: FDA-Public Use
  Company Number: IT-COVIDIEN/TYCO HEALTHCARE/MALLINCKRODT-T201300030

PATIENT
  Sex: 0

DRUGS (1)
  1. OPTIRAY [Suspect]
     Indication: ARTERIOGRAM CORONARY
     Dosage: UNK
     Route: 065

REACTIONS (1)
  - Nephropathy toxic [Unknown]
